FAERS Safety Report 6914462-9 (Version None)
Quarter: 2010Q3

REPORT INFORMATION
  Report Type: 
  Country: None (occurrence: None)
  Receive Date: 20100803
  Receipt Date: 20100720
  Transmission Date: 20110219
  Serious: Yes (Hospitalization)
  Sender: FDA-Public Use
  Company Number: GB-ACCORD-005573

PATIENT
  Age: 39 Year
  Sex: Male

DRUGS (2)
  1. MYCOPHENOLATE MOFETIL [Suspect]
     Indication: RENAL TRANSPLANT
     Dosage: 1000.00 MG-2.00P ORAL
     Route: 048
     Dates: start: 20081212
  2. TACROLIMUS [Suspect]
     Indication: RENAL TRANSPLANT
     Dosage: 4.00 MG 2.00 PER ORAL
     Route: 048
     Dates: start: 20081212

REACTIONS (2)
  - DIABETES MELLITUS [None]
  - VISION BLURRED [None]
